FAERS Safety Report 4518765-7 (Version None)
Quarter: 2004Q4

REPORT INFORMATION
  Report Type: 
  Country: None (occurrence: None)
  Receive Date: 20041104
  Receipt Date: 20040720
  Transmission Date: 20050328
  Serious: Yes (Other)
  Sender: FDA-Public Use
  Company Number: PHEH2004US07813

PATIENT
  Sex: Female

DRUGS (7)
  1. ESTROGENS SOL/INJ [Suspect]
     Indication: HORMONE REPLACEMENT THERAPY
  2. PREMPRO [Suspect]
  3. PREMARIN [Suspect]
  4. PROVERA [Suspect]
  5. ESTRATEST [Suspect]
  6. ESTRACE [Suspect]
  7. MEDROXYPROGESTERONE ACETATE [Suspect]

REACTIONS (3)
  - BREAST CANCER FEMALE [None]
  - INJURY [None]
  - SURGERY [None]
